FAERS Safety Report 6632325-3 (Version None)
Quarter: 2010Q1

REPORT INFORMATION
  Report Type: 
  Country: None (occurrence: None)
  Receive Date: 20100312
  Receipt Date: 20100308
  Transmission Date: 20100710
  Serious: Yes (Hospitalization)
  Sender: FDA-Public Use
  Company Number: B0638135A

PATIENT
  Sex: Male

DRUGS (10)
  1. AUGMENTIN '125' [Suspect]
     Indication: LUNG INFECTION
     Dosage: 1G THREE TIMES PER DAY
     Route: 048
     Dates: start: 20091211, end: 20091218
  2. VENTOLIN [Concomitant]
     Indication: ASTHMA
     Dosage: 1UNIT THREE TIMES PER DAY
     Route: 055
     Dates: start: 20091212, end: 20100103
  3. HYZAAR [Concomitant]
     Route: 048
  4. ADANCOR [Concomitant]
     Dosage: 10MG UNKNOWN
     Route: 048
  5. KARDEGIC [Concomitant]
     Indication: THROMBOSIS
     Dosage: 75MG PER DAY
     Route: 048
     Dates: start: 20091208, end: 20091230
  6. PLAVIX [Concomitant]
     Indication: THROMBOSIS
     Dosage: 75MG PER DAY
     Route: 048
     Dates: start: 20091207, end: 20091230
  7. DIGOXIN [Concomitant]
     Route: 065
     Dates: start: 20091205, end: 20091230
  8. LEXOMIL [Concomitant]
     Indication: DRUG USE FOR UNKNOWN INDICATION
     Dosage: .5UNIT PER DAY
     Route: 048
     Dates: start: 20091212, end: 20100103
  9. SYMBICORT [Concomitant]
     Dosage: 1UNIT THREE TIMES PER DAY
     Route: 055
  10. CALCIPARINE [Concomitant]
     Indication: THROMBOSIS
     Dosage: .9Z PER DAY
     Route: 065

REACTIONS (3)
  - EOSINOPHILIA [None]
  - ESCHERICHIA URINARY TRACT INFECTION [None]
  - PROSTATITIS [None]
